FAERS Safety Report 10682490 (Version 1)
Quarter: 2014Q4

REPORT INFORMATION
  Report Type: Spontaneous
  Country: US (occurrence: None)
  Receive Date: 20141229
  Receipt Date: 20141229
  Transmission Date: 20150529
  Serious: Yes (Hospitalization)
  Sender: FDA-Public Use
  Company Number: None

PATIENT
  Age: 93 Year
  Sex: Male
  Weight: 61.24 kg

DRUGS (1)
  1. BARIUM [Suspect]
     Active Substance: BARIUM

REACTIONS (6)
  - Blood pressure systolic increased [None]
  - Vomiting [None]
  - Cough [None]
  - Post procedural complication [None]
  - Chills [None]
  - Pneumonia aspiration [None]

NARRATIVE: CASE EVENT DATE: 20141219
